FAERS Safety Report 18044032 (Version 1)
Quarter: 2020Q3

REPORT INFORMATION
  Report Type: Spontaneous
  Country: US (occurrence: US)
  Receive Date: 20200718
  Receipt Date: 20200718
  Transmission Date: 20201103
  Serious: Yes (Death)
  Sender: FDA-Public Use
  Company Number: None

PATIENT
  Age: 56 Year
  Sex: Female

DRUGS (1)
  1. AMBRISENTAN 10MG TABLETS 30/BO: 10MG [Suspect]
     Active Substance: AMBRISENTAN
     Indication: PULMONARY ARTERIAL HYPERTENSION
     Route: 048
     Dates: start: 20180503, end: 20200407

REACTIONS (7)
  - Subdural haematoma [None]
  - Brain oedema [None]
  - Shock [None]
  - Corneal reflex decreased [None]
  - Acute respiratory failure [None]
  - Pyrexia [None]
  - Pupil fixed [None]

NARRATIVE: CASE EVENT DATE: 20200407
